FAERS Safety Report 7636487-0 (Version None)
Quarter: 2011Q3

REPORT INFORMATION
  Report Type: 
  Country: None (occurrence: None)
  Receive Date: 20110726
  Receipt Date: 20091114
  Transmission Date: 20111222
  Serious: Yes (Other)
  Sender: FDA-Public Use
  Company Number: US-BAYER-200939575NA

PATIENT
  Age: 68 Year
  Sex: Male
  Weight: 79 kg

DRUGS (28)
  1. VECURONIUM BROMIDE [Concomitant]
     Dosage: 5 MG, UNK
     Dates: start: 20070529
  2. FENTANYL [Concomitant]
     Dosage: UNK
     Dates: start: 20070529
  3. RED BLOOD CELLS [Concomitant]
     Dosage: 3 U, UNK
     Route: 042
     Dates: start: 20070529
  4. TRASYLOL [Suspect]
     Indication: CORONARY ARTERY BYPASS
     Dosage: 100 ML OF LOADING DOSE
     Route: 042
     Dates: start: 20070529, end: 20070529
  5. TRASYLOL [Suspect]
     Dosage: 25 ML/HOUR, INFUSION
     Route: 042
     Dates: start: 20070529, end: 20070529
  6. ASPIRIN [Concomitant]
     Dosage: 325 MG, QD
  7. TRIDIL [Concomitant]
     Dosage: UNK
     Route: 022
     Dates: start: 20070522, end: 20070522
  8. EPINEPHRINE [Concomitant]
     Dosage: UNK
     Dates: start: 20070529
  9. LIPITOR [Concomitant]
     Dosage: 40 MG, QD
     Route: 048
  10. VERSED [Concomitant]
     Dosage: UNK
     Dates: start: 20070529
  11. MANNITOL [Concomitant]
     Dosage: 25 G, UNK
     Dates: start: 20070529
  12. FRESH FROZEN PLASMA [Concomitant]
     Dosage: 4 U, UNK
     Route: 042
  13. DIGOXIN [Concomitant]
     Dosage: 0.25 MG, QD
     Route: 048
  14. SOLU-CORTEF [Concomitant]
     Dosage: 100 MG, UNK
     Route: 042
     Dates: start: 20070522, end: 20070522
  15. ESMOLOL [Concomitant]
     Dosage: 50 MG, UNK
     Route: 042
     Dates: start: 20070522, end: 20070522
  16. PLATELETS [Concomitant]
     Dosage: 16
     Route: 042
     Dates: start: 20070529
  17. TOPROL-XL [Concomitant]
     Dosage: 50 MG, QD
     Route: 048
  18. CADUET [Concomitant]
     Dosage: 5/40 MG, QD
     Route: 048
  19. VANCOMYCIN [Concomitant]
     Dosage: 1 G
     Dates: start: 20070529
  20. ISOFLURANE [Concomitant]
     Dosage: UNK, INHALED
     Dates: start: 20070529
  21. OPTIRAY 300 [Concomitant]
     Indication: CATHETERISATION CARDIAC
     Dosage: 100 ML, UNK
     Route: 042
     Dates: start: 20070522, end: 20070522
  22. VANCOMYCIN [Concomitant]
     Dosage: 1 G, UNK
     Route: 042
     Dates: start: 20070522
  23. HEPARIN [Concomitant]
     Dosage: UNK
     Route: 042
     Dates: start: 20070522, end: 20070522
  24. HEPARIN [Concomitant]
     Dosage: 3360
     Dates: start: 20070529
  25. PHENYLEPHRINE HCL [Concomitant]
     Dosage: 200 MCGT
  26. TRASYLOL [Suspect]
     Indication: AORTIC SURGERY
     Dosage: 1 ML, ONCE
     Route: 042
     Dates: start: 20070529, end: 20070529
  27. METOPROLOL TARTRATE [Concomitant]
     Dosage: 5 MG, UNK
     Route: 042
     Dates: start: 20070522, end: 20070522
  28. PROPOFOL [Concomitant]
     Dosage: UNK
     Dates: start: 20070529

REACTIONS (5)
  - INJURY [None]
  - RENAL FAILURE ACUTE [None]
  - PAIN [None]
  - UNEVALUABLE EVENT [None]
  - RENAL FAILURE [None]
